FAERS Safety Report 21943241 (Version 1)
Quarter: 2023Q1

REPORT INFORMATION
  Report Type: Spontaneous
  Country: US (occurrence: US)
  Receive Date: 20230202
  Receipt Date: 20230202
  Transmission Date: 20230418
  Serious: Yes (Hospitalization)
  Sender: FDA-Public Use
  Company Number: US-STRIDES ARCOLAB LIMITED-2022SP011011

PATIENT
  Sex: Male

DRUGS (7)
  1. GLYBURIDE [Suspect]
     Active Substance: GLYBURIDE
     Indication: Neonatal diabetes mellitus
     Dosage: 0.3 MILLIGRAM/KILOGRAM PER DAY
     Route: 048
  2. GLYBURIDE [Suspect]
     Active Substance: GLYBURIDE
     Dosage: 1.5 MG/KG PER DAY INCREASED DOSE AND ADDITIONAL TWO WEEK THERAPY
     Route: 048
  3. GLYBURIDE [Suspect]
     Active Substance: GLYBURIDE
     Dosage: 1.3 MG/KG PER DAY AT DISCHARGE
     Route: 048
  4. GLYBURIDE [Suspect]
     Active Substance: GLYBURIDE
     Dosage: 1.5 MG/KG PER DAY INCREASED DOSE AND ADDITIONAL TWO WEEK THERAPY
     Route: 065
  5. INSULIN NOS [Concomitant]
     Active Substance: INSULIN NOS
     Indication: Neonatal diabetes mellitus
     Dosage: INFUSION; 0.5-1 U/KG/DAY
     Route: 065
  6. INSULIN NOS [Concomitant]
     Active Substance: INSULIN NOS
     Dosage: 0.4 INTERNATIONAL UNIT/KILOGRAM PER DAY, INTRAVENOOUS INFUSION
     Route: 050
  7. INSULIN NOS [Concomitant]
     Active Substance: INSULIN NOS
     Dosage: 4 INTERNATIONAL UNIT PER DAY
     Route: 058

REACTIONS (1)
  - Drug ineffective for unapproved indication [Unknown]
